FAERS Safety Report 21915376 (Version 1)
Quarter: 2023Q1

REPORT INFORMATION
  Report Type: Spontaneous
  Country: US (occurrence: US)
  Receive Date: 20230126
  Receipt Date: 20230126
  Transmission Date: 20230418
  Serious: Yes (Other)
  Sender: FDA-Public Use
  Company Number: US-MLMSERVICE-20230109-4027954-1

PATIENT
  Age: 27 Year
  Sex: Male

DRUGS (11)
  1. GEMCITABINE HYDROCHLORIDE [Suspect]
     Active Substance: GEMCITABINE HYDROCHLORIDE
     Indication: Metastases to lung
     Dosage: 800 MG/M2 ADMINISTERED INTRAVENOUSLY ON DAYS 1 AND 8 OF 21-DAY CYCLE
     Route: 042
  2. GEMCITABINE HYDROCHLORIDE [Suspect]
     Active Substance: GEMCITABINE HYDROCHLORIDE
     Indication: Mixed hepatocellular cholangiocarcinoma
  3. GEMCITABINE HYDROCHLORIDE [Suspect]
     Active Substance: GEMCITABINE HYDROCHLORIDE
     Indication: Metastases to abdominal cavity
  4. LENVATINIB [Suspect]
     Active Substance: LENVATINIB
     Indication: Metastases to lung
     Route: 048
  5. LENVATINIB [Suspect]
     Active Substance: LENVATINIB
     Indication: Mixed hepatocellular cholangiocarcinoma
  6. LENVATINIB [Suspect]
     Active Substance: LENVATINIB
     Indication: Metastases to abdominal cavity
  7. CISPLATIN [Suspect]
     Active Substance: CISPLATIN
     Indication: Metastases to abdominal cavity
     Dosage: 20 MG/M2 ADMINISTERED INTRAVENOUSLY ON DAYS 1 AND 8 OF 21-DAY CYCLE
     Route: 042
  8. CISPLATIN [Suspect]
     Active Substance: CISPLATIN
     Indication: Metastases to lung
  9. CISPLATIN [Suspect]
     Active Substance: CISPLATIN
     Indication: Mixed hepatocellular cholangiocarcinoma
  10. LEVETIRACETAM [Concomitant]
     Active Substance: LEVETIRACETAM
     Dosage: 500 MG, 12 HOURS
     Route: 065
  11. VALPROATE SODIUM [Concomitant]
     Active Substance: VALPROATE SODIUM
     Dosage: EXTENDED-RELEASE
     Route: 065

REACTIONS (2)
  - Gastrointestinal haemorrhage [Recovered/Resolved]
  - Thrombocytopenia [Unknown]
